FAERS Safety Report 7443659-7 (Version None)
Quarter: 2011Q2

REPORT INFORMATION
  Report Type: 
  Country: None (occurrence: None)
  Receive Date: 20110428
  Receipt Date: 20100609
  Transmission Date: 20111010
  Serious: No
  Sender: FDA-Public Use
  Company Number: US-SANOFI-AVENTIS-2010SA022474

PATIENT
  Sex: Female
  Weight: 54.43 kg

DRUGS (3)
  1. FLOVENT [Concomitant]
  2. CLOMIPHENE CITRATE [Suspect]
     Indication: INFERTILITY
     Route: 048
     Dates: start: 20100409, end: 20100411
  3. ZYRTEC-D 12 HOUR [Concomitant]

REACTIONS (4)
  - EYE DISORDER [None]
  - NERVOUSNESS [None]
  - INSOMNIA [None]
  - PALPITATIONS [None]
